FAERS Safety Report 21749327 (Version 1)
Quarter: 2022Q4

REPORT INFORMATION
  Report Type: Spontaneous
  Country: JP (occurrence: JP)
  Receive Date: 20221219
  Receipt Date: 20221219
  Transmission Date: 20230112
  Serious: Yes (Death, Hospitalization, Other)
  Sender: FDA-Public Use
  Company Number: JP-ABBVIE-4234130

PATIENT
  Age: 39 Year
  Sex: Female

DRUGS (4)
  1. VENCLEXTA [Suspect]
     Active Substance: VENETOCLAX
     Indication: Acute myeloid leukaemia
     Dosage: DURATION TEXT: 2 CYCLES
     Route: 048
  2. AZACITIDINE [Concomitant]
     Active Substance: AZACITIDINE
     Indication: Acute myeloid leukaemia
     Dosage: DURATION TEXT: 6C
  3. Msc [Concomitant]
     Indication: Product used for unknown indication
  4. METHYLPREDNISOLONE [Concomitant]
     Active Substance: METHYLPREDNISOLONE
     Indication: Product used for unknown indication

REACTIONS (7)
  - Immune-mediated lung disease [Fatal]
  - Pneumonia [Unknown]
  - Febrile neutropenia [Unknown]
  - Diarrhoea [Unknown]
  - Blast cells present [Unknown]
  - Cord blood transplant therapy [Unknown]
  - Drug ineffective [Unknown]
